FAERS Safety Report 13742578 (Version 1)
Quarter: 2017Q3

REPORT INFORMATION
  Report Type: Spontaneous
  Country: FR (occurrence: FR)
  Receive Date: 20170711
  Receipt Date: 20170711
  Transmission Date: 20171127
  Serious: Yes (Other)
  Sender: FDA-Public Use
  Company Number: PHHY2012FR050243

PATIENT
  Age: 49 Year
  Sex: Female

DRUGS (2)
  1. CARTEOLOL [Suspect]
     Active Substance: CARTEOLOL
     Indication: INTRAOCULAR PRESSURE INCREASED
     Dosage: 1 %, UNK
     Route: 047
     Dates: start: 201109, end: 20120428
  2. CARTEOLOL [Suspect]
     Active Substance: CARTEOLOL
     Dosage: 1 %, UNK
     Route: 047

REACTIONS (9)
  - Fatigue [Unknown]
  - Raynaud^s phenomenon [Unknown]
  - Facial pain [Unknown]
  - Dizziness [Unknown]
  - Muscle contracture [Unknown]
  - Hypotonia [Unknown]
  - Anxiety [Unknown]
  - Tension [Unknown]
  - Dry mouth [Unknown]

NARRATIVE: CASE EVENT DATE: 201109
